FAERS Safety Report 7451073-3 (Version None)
Quarter: 2011Q2

REPORT INFORMATION
  Report Type: 
  Country: None (occurrence: None)
  Receive Date: 20110502
  Receipt Date: 20110418
  Transmission Date: 20111010
  Serious: Yes (Hospitalization)
  Sender: FDA-Public Use
  Company Number: DE-ROCHE-774228

PATIENT
  Sex: Female
  Weight: 57 kg

DRUGS (3)
  1. TAXOL [Suspect]
     Indication: METASTATIC BRONCHIAL CARCINOMA
     Dosage: 1 ST CYCLE
     Route: 042
     Dates: start: 20110405
  2. BEVACIZUMAB [Suspect]
     Indication: METASTATIC BRONCHIAL CARCINOMA
     Dosage: 1 ST CYCLE
     Route: 042
     Dates: start: 20110405
  3. CARBOPLATIN [Suspect]
     Indication: METASTATIC BRONCHIAL CARCINOMA
     Dosage: 1 ST CYCLE
     Route: 042
     Dates: start: 20110405

REACTIONS (8)
  - NAUSEA [None]
  - VOMITING [None]
  - BONE PAIN [None]
  - ABDOMINAL PAIN [None]
  - PAIN IN EXTREMITY [None]
  - WEIGHT DECREASED [None]
  - ORAL CANDIDIASIS [None]
  - GENERAL PHYSICAL HEALTH DETERIORATION [None]
